FAERS Safety Report 26044486 (Version 1)
Quarter: 2025Q4

REPORT INFORMATION
  Report Type: Other
  Country: CA (occurrence: CA)
  Receive Date: 20251114
  Receipt Date: 20251114
  Transmission Date: 20260117
  Serious: Yes (Life-Threatening, Other)
  Sender: APOTEX
  Company Number: CA-PGRTD-001155936

PATIENT
  Age: 16 Year
  Sex: Female
  Weight: 51 kg

DRUGS (3)
  1. BUSULFAN [Suspect]
     Active Substance: BUSULFAN
     Indication: Bone marrow conditioning regimen
     Dosage: 180 MILLIGRAM, EVERY 3 HOURS
     Route: 065
  2. GEMCITABINE [Suspect]
     Active Substance: GEMCITABINE
     Indication: Bone marrow conditioning regimen
     Dosage: 4000 MILLIGRAM, EVERY 4.5 HOURS
     Route: 042
  3. MELPHALAN [Suspect]
     Active Substance: MELPHALAN
     Indication: Bone marrow conditioning regimen
     Dosage: 90 MILLIGRAM
     Route: 042

REACTIONS (4)
  - Oropharyngeal pain [Unknown]
  - Parenteral nutrition [Unknown]
  - Mucosal inflammation [Unknown]
  - Abdominal pain [Unknown]
